FAERS Safety Report 20301833 (Version 1)
Quarter: 2022Q1

REPORT INFORMATION
  Report Type: Spontaneous
  Country: CH (occurrence: CH)
  Receive Date: 20220105
  Receipt Date: 20220105
  Transmission Date: 20220423
  Serious: Yes (Other)
  Sender: FDA-Public Use
  Company Number: None

PATIENT
  Age: 57 Year
  Sex: Male

DRUGS (18)
  1. CYCLOPHOSPHAMIDE [Suspect]
     Active Substance: CYCLOPHOSPHAMIDE
     Indication: Burkitt^s lymphoma stage IV
     Dosage: 5 CYCLES
     Route: 042
     Dates: start: 20210506, end: 20210917
  2. CYCLOPHOSPHAMIDE [Suspect]
     Active Substance: CYCLOPHOSPHAMIDE
     Dosage: DOSE RE-INTRODUCED
     Route: 042
  3. DOXORUBICIN HYDROCHLORIDE [Suspect]
     Active Substance: DOXORUBICIN HYDROCHLORIDE
     Indication: Burkitt^s lymphoma stage IV
     Dosage: 5 CYCLES
     Route: 065
     Dates: start: 20210506, end: 20210917
  4. DOXORUBICIN HYDROCHLORIDE [Suspect]
     Active Substance: DOXORUBICIN HYDROCHLORIDE
     Dosage: DOSE RE-INTRODUCED
     Route: 065
  5. VINCRISTINE [Suspect]
     Active Substance: VINCRISTINE
     Indication: Burkitt^s lymphoma stage IV
     Dosage: 5 CYCLES
     Route: 042
     Dates: start: 20210506, end: 20210917
  6. VINCRISTINE [Suspect]
     Active Substance: VINCRISTINE
     Dosage: DOSE RE-INTRODUCED
     Route: 042
  7. PREDNISONE [Suspect]
     Active Substance: PREDNISONE
     Indication: Burkitt^s lymphoma stage IV
     Route: 065
     Dates: start: 20210506, end: 20210917
  8. PREDNISONE [Suspect]
     Active Substance: PREDNISONE
     Dosage: DOSE RE-INTRODUCED
     Route: 065
  9. DEXAMETHASONE [Suspect]
     Active Substance: DEXAMETHASONE
     Indication: Burkitt^s lymphoma stage IV
     Route: 065
     Dates: start: 20210506, end: 20210917
  10. DEXAMETHASONE [Suspect]
     Active Substance: DEXAMETHASONE
     Dosage: DOSE RE-INTRODUCED
     Route: 065
  11. METHOTREXATE [Suspect]
     Active Substance: METHOTREXATE
     Indication: Burkitt^s lymphoma stage IV
     Dosage: 8 CYCLES
     Route: 037
     Dates: start: 20210518, end: 20211011
  12. METHOTREXATE [Suspect]
     Active Substance: METHOTREXATE
     Dosage: 4 CYCLES
     Route: 042
     Dates: start: 20210603, end: 20211007
  13. METHOTREXATE [Suspect]
     Active Substance: METHOTREXATE
     Dosage: DOSE RE-INTRODUCED
     Route: 042
  14. CYTARABINE [Suspect]
     Active Substance: CYTARABINE
     Indication: Burkitt^s lymphoma stage IV
     Dosage: 8 CYCLES
     Route: 037
     Dates: start: 20210518, end: 20211011
  15. CYTARABINE [Suspect]
     Active Substance: CYTARABINE
     Dosage: 5 CYCLES
     Route: 042
     Dates: start: 20210603, end: 20211007
  16. CYTARABINE [Suspect]
     Active Substance: CYTARABINE
     Dosage: DOSE RE-INTRODUCED
     Route: 042
  17. ETOPOSIDE [Concomitant]
     Active Substance: ETOPOSIDE
     Indication: Product used for unknown indication
     Route: 065
     Dates: start: 20210506, end: 20210527
  18. RITUXIMAB [Concomitant]
     Active Substance: RITUXIMAB
     Indication: Product used for unknown indication
     Route: 065
     Dates: start: 20210512, end: 20211007

REACTIONS (5)
  - Paraplegia [Recovering/Resolving]
  - Loss of proprioception [Recovering/Resolving]
  - Drug interaction [Recovering/Resolving]
  - Hypoaesthesia [Recovering/Resolving]
  - Myelopathy [Recovering/Resolving]

NARRATIVE: CASE EVENT DATE: 20211001
